FAERS Safety Report 24823893 (Version 1)
Quarter: 2025Q1

REPORT INFORMATION
  Report Type: Spontaneous
  Country: TH (occurrence: TH)
  Receive Date: 20250109
  Receipt Date: 20250109
  Transmission Date: 20250408
  Serious: Yes (Other)
  Sender: ALKEM
  Company Number: TH-ALKEM LABORATORIES LIMITED-TH-ALKEM-2024-04786

PATIENT
  Age: 10 Year
  Sex: Female

DRUGS (4)
  1. DEFERASIROX [Suspect]
     Active Substance: DEFERASIROX
     Indication: Thalassaemia
     Dosage: UNK, OD DISPERSABLE TABLET
     Route: 065
  2. DEFERASIROX [Suspect]
     Active Substance: DEFERASIROX
     Dosage: 35 MILLIGRAM/KILOGRAM, QD (3.5 TABLETS DAILY)
     Route: 065
  3. DEFERASIROX [Suspect]
     Active Substance: DEFERASIROX
     Dosage: UNK, BID (2 TABLETS)
     Route: 065
  4. DEFERASIROX [Suspect]
     Active Substance: DEFERASIROX
     Dosage: 48 MILLIGRAM/KILOGRAM, QD
     Route: 065

REACTIONS (2)
  - Renal tubular dysfunction [Recovered/Resolved]
  - Incorrect dose administered [Unknown]
